FAERS Safety Report 10272773 (Version 2)
Quarter: 2014Q3

REPORT INFORMATION
  Report Type: Spontaneous
  Country: US (occurrence: US)
  Receive Date: 20140702
  Receipt Date: 20140702
  Transmission Date: 20150326
  Serious: No
  Sender: FDA-Public Use
  Company Number: US-AMGEN-USASP2014020275

PATIENT
  Age: 64 Year
  Sex: Female

DRUGS (1)
  1. ENBREL [Suspect]
     Active Substance: ETANERCEPT
     Indication: RHEUMATOID ARTHRITIS
     Dosage: 25 MG, QWK
     Route: 065
     Dates: start: 201401

REACTIONS (22)
  - Blood cholesterol increased [Not Recovered/Not Resolved]
  - Blood triglycerides increased [Not Recovered/Not Resolved]
  - Rhinorrhoea [Recovered/Resolved]
  - Pain in extremity [Not Recovered/Not Resolved]
  - Respiratory tract congestion [Recovered/Resolved]
  - Bone pain [Not Recovered/Not Resolved]
  - Visual acuity reduced [Recovered/Resolved]
  - Drug effect incomplete [Not Recovered/Not Resolved]
  - Seasonal allergy [Recovered/Resolved]
  - Eye discharge [Recovered/Resolved]
  - Influenza [Recovered/Resolved]
  - Fatigue [Not Recovered/Not Resolved]
  - Skin irritation [Not Recovered/Not Resolved]
  - Mobility decreased [Not Recovered/Not Resolved]
  - Pain [Not Recovered/Not Resolved]
  - Rash pruritic [Not Recovered/Not Resolved]
  - Injection site erythema [Not Recovered/Not Resolved]
  - Lacrimation increased [Recovered/Resolved]
  - Contusion [Not Recovered/Not Resolved]
  - Musculoskeletal discomfort [Not Recovered/Not Resolved]
  - Cough [Recovered/Resolved]
  - Skin burning sensation [Recovered/Resolved]

NARRATIVE: CASE EVENT DATE: 2014
